FAERS Safety Report 7396251-7 (Version None)
Quarter: 2011Q2

REPORT INFORMATION
  Report Type: 
  Country: None (occurrence: None)
  Receive Date: 20110406
  Receipt Date: 20110330
  Transmission Date: 20111010
  Serious: Yes (Death)
  Sender: FDA-Public Use
  Company Number: GB-AMGEN-GBRSP2011005419

PATIENT
  Age: 87 Year
  Sex: Female

DRUGS (20)
  1. ADCAL-D3 [Concomitant]
     Dosage: 1 DF, 1X/DAY
  2. COLECALCIFEROL [Concomitant]
     Dosage: 10 UG, 1X/DAY
  3. ENBREL [Suspect]
     Indication: RHEUMATOID ARTHRITIS
     Dosage: 50 MG, WEEKLY
     Route: 058
     Dates: start: 20101029, end: 20101223
  4. PARACETAMOL [Concomitant]
     Dosage: 1000 MG, 4X/DAY
  5. QUININE SULFATE [Concomitant]
     Indication: MUSCLE SPASMS
     Dosage: 300 MG, 1X/DAY
  6. CALCIUM CARBONATE [Concomitant]
     Dosage: 1.5 G, 1X/DAY
  7. AMITRIPTYLINE HYDROCHLORIDE [Concomitant]
     Indication: DEPRESSION
     Dosage: 50 MG, 1X/DAY
     Route: 048
     Dates: start: 20080101
  8. TORSEMIDE [Concomitant]
     Dosage: 5 MG, 1X/DAY
  9. DICLOFENAC [Concomitant]
     Dosage: 1 DF, 3X/DAY
  10. FERROUS SULPHATE                   /00023503/ [Concomitant]
     Dosage: 200 MG, 1X/DAY
  11. SENNA                              /00142201/ [Concomitant]
     Dosage: 15 MG, 1X/DAY
  12. OMEPRAZOLE [Concomitant]
     Dosage: 20 MG, UNK
  13. ORAMORPH SR [Concomitant]
     Indication: PAIN
     Dosage: UNK
     Route: 048
  14. ALENDRONIC ACID [Concomitant]
     Indication: OSTEOPOROSIS
     Dosage: 70 MG, UNK
     Route: 048
     Dates: start: 20060101
  15. AMITRIPTYLINE HYDROCHLORIDE [Concomitant]
     Indication: SEDATION
  16. PREDNISOLONE [Concomitant]
     Dosage: 15 MG UNIT DOSE, UNKNOWN DOSAGE AS NECESSARY
  17. VALSARTAN [Concomitant]
     Dosage: 40 MG, 1X/DAY
  18. DOCUSATE SODIUM [Concomitant]
     Dosage: 200 MG, 2X/DAY
  19. FENTANYL [Concomitant]
     Indication: PAIN
     Dosage: 75 UG, ONE PER HOUR
     Route: 062
  20. SERTRALINE HYDROCHLORIDE [Concomitant]
     Dosage: 50 MG, ALTERNATE DAY

REACTIONS (1)
  - DEATH [None]
